FAERS Safety Report 18273613 (Version 3)
Quarter: 2020Q4

REPORT INFORMATION
  Report Type: Spontaneous
  Country: JP (occurrence: JP)
  Receive Date: 20200916
  Receipt Date: 20201023
  Transmission Date: 20210113
  Serious: Yes (Death, Hospitalization)
  Sender: FDA-Public Use
  Company Number: JP-OTSUKA-2020_022316

PATIENT
  Sex: Male

DRUGS (2)
  1. SERENACE [Suspect]
     Active Substance: HALOPERIDOL
     Indication: PRODUCT USED FOR UNKNOWN INDICATION
     Dosage: UNK
     Route: 048
  2. REXULTI [Suspect]
     Active Substance: BREXPIPRAZOLE
     Indication: SCHIZOPHRENIA
     Dosage: 1MG, 1 TABLET IN THE MORNING
     Route: 048

REACTIONS (25)
  - Constipation [Unknown]
  - Polydipsia [Unknown]
  - Hyperphagia [Unknown]
  - Adenovirus infection [Fatal]
  - Aggression [Recovering/Resolving]
  - Polyuria [Unknown]
  - Blood pressure increased [Unknown]
  - Urinary incontinence [Unknown]
  - Pain [Unknown]
  - Diarrhoea [Unknown]
  - Bronchitis viral [Fatal]
  - Thirst [Unknown]
  - Viral infection [Fatal]
  - Extrapyramidal disorder [Unknown]
  - Restlessness [Unknown]
  - Tremor [Unknown]
  - Soliloquy [Unknown]
  - Heart rate increased [Unknown]
  - Drooling [Unknown]
  - Agitation [Unknown]
  - Dermatillomania [Unknown]
  - Insomnia [Unknown]
  - Psychiatric symptom [Unknown]
  - Abnormal behaviour [Unknown]
  - Pollakiuria [Unknown]
